FAERS Safety Report 8965210 (Version 1)
Quarter: 2012Q4

REPORT INFORMATION
  Report Type: 
  Country: US (occurrence: US)
  Receive Date: 20121213
  Receipt Date: 20121213
  Transmission Date: 20130627
  Serious: Yes (Disabling, Other)
  Sender: FDA-Public Use
  Company Number: US-BRISTOL-MYERS SQUIBB COMPANY-16671968

PATIENT
  Age: 50 Year
  Sex: Female

DRUGS (1)
  1. IXEMPRA [Suspect]

REACTIONS (4)
  - Myalgia [Unknown]
  - Cough [Unknown]
  - Pain [Unknown]
  - Arthralgia [Unknown]
